FAERS Safety Report 5517137-6 (Version None)
Quarter: 2007Q4

REPORT INFORMATION
  Report Type: 
  Country: None (occurrence: None)
  Receive Date: 20071114
  Receipt Date: 20071108
  Transmission Date: 20080405
  Serious: Yes (Hospitalization)
  Sender: FDA-Public Use
  Company Number: B0492865A

PATIENT
  Age: 83 Year
  Sex: Female

DRUGS (8)
  1. VALTREX [Suspect]
     Indication: HERPES ZOSTER
     Dosage: 500MG PER DAY
     Route: 048
     Dates: start: 20071016, end: 20071017
  2. TENORMIN [Concomitant]
     Route: 048
  3. BIOFERMIN [Concomitant]
     Route: 048
  4. MUCOSTA [Concomitant]
     Route: 048
  5. LENDORMIN [Concomitant]
     Route: 048
  6. FUROSEMIDE [Concomitant]
     Route: 048
  7. TANKARU [Concomitant]
     Route: 048
  8. MICARDIS [Concomitant]
     Route: 048

REACTIONS (4)
  - ALTERED STATE OF CONSCIOUSNESS [None]
  - DYSARTHRIA [None]
  - ENCEPHALOPATHY [None]
  - SHOCK [None]
